FAERS Safety Report 11049343 (Version 1)
Quarter: 2015Q2

REPORT INFORMATION
  Report Type: Spontaneous
  Country: IL (occurrence: IL)
  Receive Date: 20150420
  Receipt Date: 20150420
  Transmission Date: 20150821
  Serious: Yes (Death, Other)
  Sender: FDA-Public Use
  Company Number: IL-PFIZER INC-2015131800

PATIENT
  Age: 60 Year
  Sex: Female

DRUGS (9)
  1. ENALADEX [Concomitant]
     Active Substance: ENALAPRIL MALEATE
     Dosage: UNK
  2. FEMARA [Suspect]
     Active Substance: LETROZOLE
     Indication: METASTASES TO BONE
     Dosage: UNK
     Dates: start: 2011
  3. TARGIN [Concomitant]
     Active Substance: NALOXONE HYDROCHLORIDE\OXYCODONE HYDROCHLORIDE
     Dosage: UNK
  4. CARDILOL /00030002/ [Concomitant]
     Dosage: UNK
  5. RECLAST [Suspect]
     Active Substance: ZOLEDRONIC ACID
     Indication: METASTASES TO BONE
     Dosage: 4 MG, EVERY 2 MONTHS
     Dates: start: 20141123
  6. AFINITOR [Suspect]
     Active Substance: EVEROLIMUS
     Indication: BREAST CANCER METASTATIC
     Dosage: 10 MG, 1X/DAY
     Dates: start: 20150125
  7. GLUCOMIN [Concomitant]
     Active Substance: METFORMIN HYDROCHLORIDE
     Dosage: UNK
  8. AROMASIN [Suspect]
     Active Substance: EXEMESTANE
     Indication: BREAST CANCER METASTATIC
     Dosage: 25 MG, 1X/DAY
     Dates: start: 20150125
  9. AREDIA [Suspect]
     Active Substance: PAMIDRONATE DISODIUM
     Indication: METASTASES TO BONE
     Dosage: UNK
     Dates: start: 2011, end: 201411

REACTIONS (6)
  - Metabolic acidosis [Unknown]
  - Disease progression [Unknown]
  - Lethargy [Unknown]
  - Malaise [Unknown]
  - Acute kidney injury [Fatal]
  - Breast cancer metastatic [Unknown]

NARRATIVE: CASE EVENT DATE: 201411
